FAERS Safety Report 9716990 (Version 1)
Quarter: 2013Q4

REPORT INFORMATION
  Report Type: Spontaneous
  Country: US (occurrence: US)
  Receive Date: 20131127
  Receipt Date: 20131127
  Transmission Date: 20140711
  Serious: No
  Sender: FDA-Public Use
  Company Number: US-GILEAD-2009-0020236

PATIENT
  Sex: Female

DRUGS (11)
  1. LETAIRIS [Suspect]
     Indication: PULMONARY ARTERIAL HYPERTENSION
     Route: 048
  2. REVATIO [Concomitant]
  3. FUROSEMIDE [Concomitant]
  4. LISINOPRIL [Concomitant]
  5. COREG [Concomitant]
  6. DIGITEK [Concomitant]
  7. ASPIRIN [Concomitant]
  8. MIRAPEX [Concomitant]
  9. CITALOPRAM [Concomitant]
  10. AMBIEN [Concomitant]
  11. ALLEGRA-D [Concomitant]

REACTIONS (1)
  - Local swelling [Unknown]
